FAERS Safety Report 23229673 (Version 1)
Quarter: 2023Q4

REPORT INFORMATION
  Report Type: Spontaneous
  Country: US (occurrence: None)
  Receive Date: 20231127
  Receipt Date: 20231127
  Transmission Date: 20240109
  Serious: Yes (Other)
  Sender: FDA-Public Use
  Company Number: US-ROCHE-3291696

PATIENT
  Sex: Male

DRUGS (13)
  1. PULMOZYME [Suspect]
     Active Substance: DORNASE ALFA
     Indication: Cystic fibrosis
     Dosage: INHALE 2.5 MG VIA NEBULIZER TWICE A DAY
     Route: 055
     Dates: start: 20230208
  2. ACETAMINOPHEN [Concomitant]
     Active Substance: ACETAMINOPHEN
  3. ALBUTEROL SULFATE [Concomitant]
     Active Substance: ALBUTEROL SULFATE
  4. ALLOPURINOL [Concomitant]
     Active Substance: ALLOPURINOL
  5. CITALOPRAM [Concomitant]
     Active Substance: CITALOPRAM HYDROBROMIDE
  6. FINASTERIDE [Concomitant]
     Active Substance: FINASTERIDE
  7. FLUTICASONE [Concomitant]
     Active Substance: FLUTICASONE
  8. LEVOCETIRIZINE [Concomitant]
     Active Substance: LEVOCETIRIZINE
  9. LEVOTHYROXINE [Concomitant]
     Active Substance: LEVOTHYROXINE
  10. LEVOTHYROXINE [Concomitant]
     Active Substance: LEVOTHYROXINE
  11. LISINOPRIL [Concomitant]
     Active Substance: LISINOPRIL
  12. OMEPRAZOLE [Concomitant]
     Active Substance: OMEPRAZOLE
  13. TAMSULOSIN [Concomitant]
     Active Substance: TAMSULOSIN

REACTIONS (4)
  - Gastrooesophageal reflux disease [Not Recovered/Not Resolved]
  - Snoring [Not Recovered/Not Resolved]
  - Gait disturbance [Not Recovered/Not Resolved]
  - Pneumonia [Not Recovered/Not Resolved]
